FAERS Safety Report 19660513 (Version 1)
Quarter: 2021Q3

REPORT INFORMATION
  Report Type: Spontaneous
  Country: IT (occurrence: IT)
  Receive Date: 20210805
  Receipt Date: 20210805
  Transmission Date: 20211014
  Serious: Yes (Other)
  Sender: FDA-Public Use
  Company Number: IT-TEVA-2021-IT-1938078

PATIENT
  Age: 59 Year
  Sex: Female

DRUGS (15)
  1. OXALIPLATIN. [Suspect]
     Active Substance: OXALIPLATIN
     Indication: COLORECTAL CANCER METASTATIC
     Dosage: ROUTE: INFUSION,DAYS 8?22; EVERY 28 DAYS
     Route: 050
  2. PANITUMUMAB [Concomitant]
     Active Substance: PANITUMUMAB
     Indication: COLORECTAL CANCER METASTATIC
     Dosage: 8 CYCLES
     Route: 065
  3. TRIFLURIDINE/TIPIRACIL [Suspect]
     Active Substance: TIPIRACIL HYDROCHLORIDE\TRIFLURIDINE
     Indication: COLORECTAL CANCER METASTATIC
     Dosage: 70 MG/M2 DAILY; DAY 1?5, 8?12, EVERY 28 DAYS.
     Route: 065
  4. IRINOTECAN [Suspect]
     Active Substance: IRINOTECAN
     Dosage: 3 CYCLES
     Route: 065
  5. IRINOTECAN [Suspect]
     Active Substance: IRINOTECAN
     Dosage: ON DAYS 1 AND 15; EVERY 28 DAYS
     Route: 065
  6. IRINOTECAN [Suspect]
     Active Substance: IRINOTECAN
     Route: 065
  7. 5?FLUOROURACIL [Suspect]
     Active Substance: FLUOROURACIL
     Dosage: 750 MG/M2 DAILY; ROUTE: INFUSION
     Route: 050
  8. IRINOTECAN [Suspect]
     Active Substance: IRINOTECAN
     Indication: COLORECTAL CANCER METASTATIC
     Dosage: DAY 1?15; EVERY 28 DAYS
     Route: 065
  9. IRINOTECAN [Suspect]
     Active Substance: IRINOTECAN
     Dosage: DOSE REDUCED DUE TO ADR
     Route: 065
  10. REGORAFENIB. [Suspect]
     Active Substance: REGORAFENIB
     Indication: COLORECTAL CANCER METASTATIC
     Dosage: 120 MILLIGRAM DAILY; 3 WEEKS ON/1 WEEK OFF, 4 CYCLES
     Route: 065
  11. 5?FLUOROURACIL [Suspect]
     Active Substance: FLUOROURACIL
     Indication: COLORECTAL CANCER METASTATIC
     Dosage: 900 MG/M2 DAILY; ROUTE: INFUSION, DAY 1?2, 8?9, 15?16, 22?23, EVERY 28 DAYS, FOR 3 CYCLE
     Route: 050
  12. 5?FLUOROURACIL [Suspect]
     Active Substance: FLUOROURACIL
     Dosage: 800 MG/M2 DAILY; ROUTE: INFUSION, RE?INITIATED AT REDUCED DOSE
     Route: 050
  13. IRINOTECAN [Suspect]
     Active Substance: IRINOTECAN
     Dosage: 3 CYCLES; RE?INITIATED AT REDUCED DOSE
     Route: 065
  14. AFLIBERCEPT [Suspect]
     Active Substance: AFLIBERCEPT
     Indication: COLORECTAL CANCER METASTATIC
     Dosage: DAY 1?15; EVERY 28 DAYS
     Route: 065
  15. BEVACIZUMAB. [Suspect]
     Active Substance: BEVACIZUMAB
     Indication: COLORECTAL CANCER METASTATIC
     Dosage: DAYS 1?15; EVERY 28 DAYS
     Route: 065

REACTIONS (26)
  - Diarrhoea [Unknown]
  - Asthenia [Unknown]
  - Dysphonia [Unknown]
  - Hypokalaemia [Unknown]
  - Thrombocytopenia [Unknown]
  - Neutropenia [Unknown]
  - Epistaxis [Unknown]
  - Neuropathy peripheral [Unknown]
  - Erythema [Unknown]
  - Dry skin [Unknown]
  - Leukopenia [Unknown]
  - Decreased appetite [Unknown]
  - Mucosal inflammation [Unknown]
  - Pyrexia [Unknown]
  - Dysgeusia [Unknown]
  - Rash [Unknown]
  - Anaemia [Unknown]
  - Rhinitis [Unknown]
  - Alopecia [Unknown]
  - Constipation [Unknown]
  - Hypertension [Unknown]
  - Palmar-plantar erythrodysaesthesia syndrome [Unknown]
  - Paronychia [Unknown]
  - Hypotension [Unknown]
  - Nausea [Unknown]
  - Infusion related hypersensitivity reaction [Unknown]
